FAERS Safety Report 25583021 (Version 1)
Quarter: 2025Q3

REPORT INFORMATION
  Report Type: Spontaneous
  Country: US (occurrence: US)
  Receive Date: 20250721
  Receipt Date: 20250721
  Transmission Date: 20251020
  Serious: Yes (Death)
  Sender: TAKEDA
  Company Number: US-TAKEDA-2025TUS064380

PATIENT
  Sex: Male

DRUGS (1)
  1. FRUZAQLA [Suspect]
     Active Substance: FRUQUINTINIB
     Indication: Colon cancer stage IV

REACTIONS (5)
  - Cognitive disorder [Fatal]
  - Blister [Fatal]
  - Aphonia [Fatal]
  - General physical health deterioration [Fatal]
  - Asthenia [Fatal]
